FAERS Safety Report 5487359-1 (Version None)
Quarter: 2007Q4

REPORT INFORMATION
  Report Type: 
  Country: None (occurrence: None)
  Receive Date: 20071016
  Receipt Date: 20071004
  Transmission Date: 20080405
  Serious: Yes (Hospitalization, Other)
  Sender: FDA-Public Use
  Company Number: US-PFIZER INC-2006100043

PATIENT
  Sex: Male
  Weight: 120.2 kg

DRUGS (5)
  1. CELEBREX [Suspect]
     Indication: PAIN
     Route: 048
     Dates: start: 19990428, end: 20010629
  2. VIOXX [Suspect]
     Indication: ARTHRALGIA
     Route: 048
     Dates: start: 20010601
  3. VIOXX [Suspect]
     Indication: MUSCULOSKELETAL STIFFNESS
  4. VIOXX [Suspect]
     Indication: OEDEMA PERIPHERAL
  5. HYDROCODONE [Concomitant]
     Indication: PAIN

REACTIONS (3)
  - CARDIAC ARREST [None]
  - CORONARY ARTERY DISEASE [None]
  - MYOCARDIAL INFARCTION [None]
